FAERS Safety Report 26086008 (Version 1)
Quarter: 2025Q4

REPORT INFORMATION
  Report Type: Spontaneous
  Country: US (occurrence: US)
  Receive Date: 20251125
  Receipt Date: 20251125
  Transmission Date: 20260117
  Serious: No
  Sender: GLAXOSMITHKLINE
  Company Number: US-GSK-US2025151029

PATIENT
  Sex: Female

DRUGS (1)
  1. TRELEGY ELLIPTA [Suspect]
     Active Substance: FLUTICASONE FUROATE\UMECLIDINIUM BROMIDE\VILANTEROL TRIFENATATE
     Indication: Chronic obstructive pulmonary disease
     Dosage: 2 INHALATIONS FOR 5 DAYS..THEN SHE WENT BACK TO ONCE DAILY

REACTIONS (4)
  - Dyspnoea [Recovered/Resolved]
  - Overdose [Unknown]
  - Product use issue [Unknown]
  - Product complaint [Unknown]
